FAERS Safety Report 19159384 (Version 3)
Quarter: 2022Q2

REPORT INFORMATION
  Report Type: Spontaneous
  Country: US (occurrence: US)
  Receive Date: 20210420
  Receipt Date: 20220419
  Transmission Date: 20220720
  Serious: Yes (Other)
  Sender: FDA-Public Use
  Company Number: US-PFIZER INC-2021344935

PATIENT
  Age: 66 Year
  Sex: Female

DRUGS (1)
  1. XELJANZ XR [Suspect]
     Active Substance: TOFACITINIB CITRATE
     Dosage: 11 MG, 1X/DAY (DIRECTIONS TAKE 1 TABLET BY MOUTH DAILY AS DIRECTED BY PHYSICIAN)
     Route: 048

REACTIONS (3)
  - Arthropathy [Unknown]
  - Feeling abnormal [Unknown]
  - Product prescribing error [Unknown]
